FAERS Safety Report 7242001-4 (Version None)
Quarter: 2011Q1

REPORT INFORMATION
  Report Type: 
  Country: None (occurrence: None)
  Receive Date: 20110124
  Receipt Date: 20110121
  Transmission Date: 20110831
  Serious: Yes (Hospitalization)
  Sender: FDA-Public Use
  Company Number: US-B.I. PHARMACEUTICALS,INC./RIDGEFIELD-2011-BP-01435BP

PATIENT
  Age: 79 Year
  Sex: Female

DRUGS (8)
  1. PRADAXA [Suspect]
  2. ATIVAN [Concomitant]
     Indication: NEOPLASM MALIGNANT
  3. ALOXI [Concomitant]
     Indication: NEOPLASM MALIGNANT
  4. CARBOPLATIN [Concomitant]
     Indication: NEOPLASM MALIGNANT
  5. REGLAN [Concomitant]
     Indication: NEOPLASM MALIGNANT
  6. BENADRYL [Concomitant]
     Indication: NEOPLASM MALIGNANT
  7. TAXOTERE [Concomitant]
     Indication: NEOPLASM MALIGNANT
  8. ZOFRAN [Concomitant]
     Indication: NEOPLASM MALIGNANT

REACTIONS (1)
  - GASTROINTESTINAL HAEMORRHAGE [None]
